FAERS Safety Report 21203124 (Version 2)
Quarter: 2022Q3

REPORT INFORMATION
  Report Type: Spontaneous
  Country: US (occurrence: US)
  Receive Date: 20220811
  Receipt Date: 20220826
  Transmission Date: 20221027
  Serious: Yes (Life-Threatening, Hospitalization)
  Sender: FDA-Public Use
  Company Number: US-TEVA-2022-US-2062578

PATIENT
  Age: 25 Year
  Sex: Female

DRUGS (4)
  1. EPINEPHRINE [Suspect]
     Active Substance: EPINEPHRINE
     Indication: Shock
     Dosage: IM EPINEPHRINE FOR 2 TIMES, 0.3 MG
     Route: 030
  2. EPINEPHRINE [Suspect]
     Active Substance: EPINEPHRINE
     Dosage: LATER, SHE RECEIVED EPINEPHRINE INFUSION
     Route: 050
  3. METHYLPREDNISOLONE [Suspect]
     Active Substance: METHYLPREDNISOLONE
     Indication: Acute respiratory distress syndrome
     Dosage: 125 MG
     Route: 042
  4. GADAVIST [Suspect]
     Active Substance: GADOBUTROL
     Indication: Diagnostic procedure
     Dosage: 6ML OF 1 MMOL/ML GADOBUTROL
     Route: 065

REACTIONS (7)
  - Acute respiratory distress syndrome [Recovering/Resolving]
  - Shock [Recovering/Resolving]
  - Disseminated intravascular coagulation [Recovering/Resolving]
  - Hypoxia [Recovering/Resolving]
  - Metabolic acidosis [Recovering/Resolving]
  - Lactic acidosis [Recovering/Resolving]
  - Drug ineffective [Unknown]
